FAERS Safety Report 5926209-3 (Version None)
Quarter: 2008Q4

REPORT INFORMATION
  Report Type: 
  Country: None (occurrence: None)
  Receive Date: 20081017
  Receipt Date: 20081002
  Transmission Date: 20090506
  Serious: Yes (Hospitalization)
  Sender: FDA-Public Use
  Company Number: 2007BM000068

PATIENT
  Age: 7 Year
  Sex: Female
  Weight: 21.3 kg

DRUGS (12)
  1. NAGLAZYME [Suspect]
     Indication: MUCOPOLYSACCHARIDOSIS VI
     Dosage: 1 MG/KG; QW; IVDRP
     Route: 041
     Dates: start: 20060420, end: 20080214
  2. NAGLAZYME [Suspect]
  3. METHYLPHENIDATE HCL [Suspect]
     Indication: ATTENTION DEFICIT/HYPERACTIVITY DISORDER
     Dosage: 2.5 MG; BID; PO, 10 MG; QD; PO
     Route: 048
     Dates: start: 20070713, end: 20070713
  4. METHYLPHENIDATE HCL [Suspect]
     Indication: ATTENTION DEFICIT/HYPERACTIVITY DISORDER
     Dosage: 2.5 MG; BID; PO, 10 MG; QD; PO
     Route: 048
     Dates: start: 20070305, end: 20070816
  5. PREDNISONE TAB [Concomitant]
  6. LANSOPRAZOLE [Concomitant]
  7. CALCIUM CARBONATE [Concomitant]
  8. DIPHENHYDRAMINE HCL [Concomitant]
  9. HYDROCORTISONE SODIUM SUCCINATE [Concomitant]
  10. ACETAMINOPHEN [Concomitant]
  11. TETRACOSACTIDE [Concomitant]
  12. CLONIDINE [Concomitant]

REACTIONS (8)
  - ACTIVATED PARTIAL THROMBOPLASTIN TIME PROLONGED [None]
  - BONE MARROW TRANSPLANT [None]
  - GASTROINTESTINAL HAEMORRHAGE [None]
  - HYPERTENSION [None]
  - INFUSION RELATED REACTION [None]
  - INTERNATIONAL NORMALISED RATIO ABNORMAL [None]
  - MASTOIDITIS [None]
  - URTICARIA [None]
